FAERS Safety Report 16641119 (Version 1)
Quarter: 2019Q3

REPORT INFORMATION
  Report Type: Spontaneous
  Country: FR (occurrence: FR)
  Receive Date: 20190729
  Receipt Date: 20190729
  Transmission Date: 20191004
  Serious: Yes (Hospitalization)
  Sender: FDA-Public Use
  Company Number: FR-ADIENNEP-2019AD000139

PATIENT
  Age: 58 Year
  Sex: Male
  Weight: 66 kg

DRUGS (5)
  1. MYCOPHENOLATE MOFETIL. [Concomitant]
     Active Substance: MYCOPHENOLATE MOFETIL
     Indication: IMMUNOSUPPRESSANT DRUG THERAPY
     Dosage: 2000 MG
     Route: 048
     Dates: start: 20181023, end: 20181122
  2. FLUDARABINE [Concomitant]
     Active Substance: FLUDARABINE PHOSPHATE
     Indication: ALLOGENIC STEM CELL TRANSPLANTATION
     Dosage: 75.2 MG
     Route: 042
     Dates: start: 20181018, end: 20181021
  3. CICLOSPORIN [Concomitant]
     Active Substance: CYCLOSPORINE
     Indication: IMMUNOSUPPRESSANT DRUG THERAPY
     Dosage: 80 MG
     Route: 048
     Dates: start: 20181022, end: 20190502
  4. BUSULFAN. [Concomitant]
     Active Substance: BUSULFAN
     Indication: ALLOGENIC STEM CELL TRANSPLANTATION
     Dosage: 188 MG
     Route: 042
     Dates: start: 20181020, end: 20181021
  5. THIOTEPA. [Suspect]
     Active Substance: THIOTEPA
     Indication: ALLOGENIC STEM CELL TRANSPLANTATION
     Dosage: 375 MG
     Route: 042
     Dates: start: 20181017, end: 20181017

REACTIONS (2)
  - Acute graft versus host disease in skin [Recovered/Resolved]
  - Acute graft versus host disease in intestine [Recovered/Resolved]

NARRATIVE: CASE EVENT DATE: 20181017
